FAERS Safety Report 7621348-3 (Version None)
Quarter: 2011Q3

REPORT INFORMATION
  Report Type: 
  Country: None (occurrence: None)
  Receive Date: 20110719
  Receipt Date: 20110712
  Transmission Date: 20111222
  Serious: Yes (Hospitalization, Other)
  Sender: FDA-Public Use
  Company Number: US-BAYER-2011-015970

PATIENT
  Age: 21 Year
  Sex: Female

DRUGS (1)
  1. MIRENA [Suspect]
     Indication: CONTRACEPTION
     Dosage: DAILY DOSE 20 ?G/D
     Route: 015
     Dates: start: 20100401, end: 20101119

REACTIONS (14)
  - BALANCE DISORDER [None]
  - FEELING ABNORMAL [None]
  - PAIN [None]
  - SYNCOPE [None]
  - MENORRHAGIA [None]
  - PYREXIA [None]
  - VOMITING [None]
  - CHEST DISCOMFORT [None]
  - PREGNANCY WITH CONTRACEPTIVE DEVICE [None]
  - MENSTRUATION IRREGULAR [None]
  - ABDOMINAL DISCOMFORT [None]
  - ABDOMINAL PAIN LOWER [None]
  - ABORTION SPONTANEOUS [None]
  - DEVICE EXPULSION [None]
